FAERS Safety Report 19915013 (Version 1)
Quarter: 2021Q4

REPORT INFORMATION
  Report Type: Spontaneous
  Country: US (occurrence: US)
  Receive Date: 20211004
  Receipt Date: 20211004
  Transmission Date: 20220303
  Serious: Yes (Other)
  Sender: FDA-Public Use
  Company Number: US-TEVA-2021-US-1960822

PATIENT
  Age: 62 Year
  Sex: Female

DRUGS (1)
  1. DEXTROAMPHET SACCHARAT, AMPHET ASPARTATE, DEXTROAMPHET SULFATE AND AMP [Suspect]
     Active Substance: AMPHETAMINE ASPARTATE\AMPHETAMINE SULFATE\DEXTROAMPHETAMINE SACCHARATE\DEXTROAMPHETAMINE SULFATE
     Indication: Attention deficit hyperactivity disorder
     Dosage: SHE HAS BEEN USING THESE TABLETS FROM MANY YEARS
     Route: 065

REACTIONS (8)
  - Confusional state [Unknown]
  - Headache [Unknown]
  - Migraine [Unknown]
  - Disturbance in attention [Unknown]
  - Tongue discolouration [Unknown]
  - Dysgeusia [Unknown]
  - Pyrexia [Unknown]
  - Product quality issue [Unknown]

NARRATIVE: CASE EVENT DATE: 20210924
